FAERS Safety Report 24584567 (Version 1)
Quarter: 2024Q4

REPORT INFORMATION
  Report Type: Spontaneous
  Country: US (occurrence: None)
  Receive Date: 20241105
  Receipt Date: 20241105
  Transmission Date: 20250115
  Serious: Yes (Other)
  Sender: Public
  Company Number: None

PATIENT
  Age: 28 Year
  Sex: Female
  Weight: 80.1 kg

DRUGS (4)
  1. VALACYCLOVIR HYDROCHLORIDE [Suspect]
     Active Substance: VALACYCLOVIR HYDROCHLORIDE
     Indication: Herpes simplex viraemia
     Dates: start: 20230921, end: 20241103
  2. BUPROPION [Concomitant]
     Active Substance: BUPROPION
  3. Syeda birth control [Concomitant]
  4. LEVOTHYROXINE [Concomitant]
     Active Substance: LEVOTHYROXINE

REACTIONS (20)
  - Depression [None]
  - Judgement impaired [None]
  - Agitation [None]
  - Emotional disorder [None]
  - Suicidal ideation [None]
  - Suicide attempt [None]
  - Psychotic disorder [None]
  - Thinking abnormal [None]
  - Anger [None]
  - Self-destructive behaviour [None]
  - Therapy cessation [None]
  - Crying [None]
  - Poor quality sleep [None]
  - Mania [None]
  - Energy increased [None]
  - Psychomotor hyperactivity [None]
  - Hypophagia [None]
  - Logorrhoea [None]
  - Dysarthria [None]
  - Therapy cessation [None]

NARRATIVE: CASE EVENT DATE: 20241103
